FAERS Safety Report 6566413-7 (Version None)
Quarter: 2010Q1

REPORT INFORMATION
  Report Type: 
  Country: None (occurrence: None)
  Receive Date: 20100202
  Receipt Date: 20100123
  Transmission Date: 20100710
  Serious: Yes (Hospitalization)
  Sender: FDA-Public Use
  Company Number: CA-ELI_LILLY_AND_COMPANY-CA201001005016

PATIENT
  Age: 70 Year
  Sex: Male

DRUGS (13)
  1. FORTEO [Suspect]
     Indication: OSTEOPOROSIS
     Dosage: 20 UG, DAILY (1/D)
     Route: 058
     Dates: start: 20090624
  2. NORVASC [Concomitant]
     Dosage: UNK, UNKNOWN
     Route: 065
  3. BISOPROLOL [Concomitant]
     Dosage: UNK, UNKNOWN
     Route: 065
  4. AVALIDE [Concomitant]
     Dosage: UNK, UNKNOWN
     Route: 065
  5. OXAZEPAM [Concomitant]
     Dosage: UNK, UNKNOWN
     Route: 065
  6. ARAVA [Concomitant]
     Dosage: UNK, UNKNOWN
     Route: 065
  7. COUMADIN [Concomitant]
     Dosage: UNK, UNKNOWN
     Route: 065
  8. LIPITOR [Concomitant]
     Dosage: UNK, UNKNOWN
     Route: 065
  9. FLOMAX [Concomitant]
     Dosage: UNK, UNKNOWN
     Route: 065
  10. PREDNISONE [Concomitant]
     Dosage: UNK, UNKNOWN
     Route: 065
  11. METOPROLOL TARTRATE [Concomitant]
     Dosage: UNK, UNKNOWN
     Route: 065
  12. OMEPRAZOLE [Concomitant]
     Dosage: UNK, UNKNOWN
     Route: 065
  13. CARBACHOL [Concomitant]
     Dosage: UNK, UNKNOWN
     Route: 065

REACTIONS (6)
  - ARTHRALGIA [None]
  - BLOOD VISCOSITY INCREASED [None]
  - FATIGUE [None]
  - GAIT DISTURBANCE [None]
  - OEDEMA PERIPHERAL [None]
  - PALPITATIONS [None]
